FAERS Safety Report 4918884-7 (Version None)
Quarter: 2006Q1

REPORT INFORMATION
  Report Type: 
  Country: None (occurrence: None)
  Receive Date: 20060222
  Receipt Date: 20060207
  Transmission Date: 20060701
  Serious: Yes (Hospitalization)
  Sender: FDA-Public Use
  Company Number: NL-ROCHE-435659

PATIENT
  Age: 48 Year
  Sex: Male

DRUGS (4)
  1. CAPECITABINE [Suspect]
     Dosage: DAYS 1-14 0F 3 WEEK CYCLE, AS PER PROTOCOL DOSE = 2000MG
     Route: 048
     Dates: start: 20060131
  2. BEVACIZUMAB [Suspect]
     Dosage: DAY 1 OF 3 WEEK CYCLE, AS PER PROTOCOL DOSE = 690MG
     Route: 042
     Dates: start: 20060131
  3. OXALIPLATIN [Suspect]
     Dosage: DAY 1 OF 3 WEEK CYCLE, AS PER PROTOCOL DOSE = 280MG
     Route: 042
     Dates: start: 20060131
  4. CETUXIMAB [Suspect]
     Dosage: DAY 1 OF CYCLE 1, AS PER PROTOCOL DOSE = 880MG
     Route: 042
     Dates: start: 20060131

REACTIONS (2)
  - ARTERIOSPASM CORONARY [None]
  - PYREXIA [None]
